FAERS Safety Report 9255422 (Version 1)
Quarter: 2013Q2

REPORT INFORMATION
  Report Type: Spontaneous
  Country: US (occurrence: US)
  Receive Date: 20130425
  Receipt Date: 20130425
  Transmission Date: 20140414
  Serious: No
  Sender: FDA-Public Use
  Company Number: US-BRISTOL-MYERS SQUIBB COMPANY-17308875

PATIENT
  Age: 49 Year
  Sex: Female
  Weight: 61 kg

DRUGS (4)
  1. SPRYCEL (CML) TABS 100 MG [Suspect]
     Indication: CHRONIC MYELOID LEUKAEMIA
     Dosage: LAST DOSE ON 08-JAN-2013
     Route: 048
     Dates: start: 20121224
  2. HYDROXYUREA [Suspect]
     Indication: CHRONIC MYELOID LEUKAEMIA
     Dosage: LAST DOSE ON 30-DEC-2012
     Dates: start: 20121224
  3. IBUPROFEN [Concomitant]
  4. ALLOPURINOL [Concomitant]

REACTIONS (1)
  - White blood cell count decreased [Unknown]
